FAERS Safety Report 15169619 (Version 1)
Quarter: 2018Q3

REPORT INFORMATION
  Report Type: Spontaneous
  Country: US (occurrence: US)
  Receive Date: 20180720
  Receipt Date: 20180720
  Transmission Date: 20181010
  Serious: No
  Sender: FDA-Public Use
  Company Number: US-LUPIN PHARMACEUTICALS INC.-2017-07108

PATIENT
  Sex: Female
  Weight: 108.84 kg

DRUGS (1)
  1. IRBESARTAN AND HYDROCHLOROTHIAZIDE TABLETS USP 150 MG/12.5 MG [Suspect]
     Active Substance: HYDROCHLOROTHIAZIDE\IRBESARTAN
     Indication: HYPERTENSION
     Dosage: UNK UNK, QD
     Route: 048

REACTIONS (2)
  - Product size issue [Unknown]
  - Foreign body in respiratory tract [Unknown]
